FAERS Safety Report 24610596 (Version 1)
Quarter: 2024Q4

REPORT INFORMATION
  Report Type: Spontaneous
  Country: FR (occurrence: FR)
  Receive Date: 20241112
  Receipt Date: 20241112
  Transmission Date: 20250115
  Serious: Yes (Hospitalization)
  Sender: NOVARTIS
  Company Number: None

PATIENT
  Age: 24 Year
  Sex: Female
  Weight: 65 kg

DRUGS (7)
  1. CARBAMAZEPINE [Suspect]
     Active Substance: CARBAMAZEPINE
     Indication: Aggression
     Dosage: 2 DOSAGE FORM, QD, (0.5-0-0.5)
     Route: 048
     Dates: start: 20230828, end: 20231005
  2. AUGMENTIN [Suspect]
     Active Substance: AMOXICILLIN\CLAVULANATE POTASSIUM
     Indication: Impetigo
     Dosage: UNK, (500 MG/62.5 MG ADULTS), ((AMOXICILLIN/CLAVULANIC ACID RATIO: 8/1))
     Route: 048
     Dates: start: 20231004, end: 20231009
  3. TRIHEXYPHENIDYL HYDROCHLORIDE [Suspect]
     Active Substance: TRIHEXYPHENIDYL HYDROCHLORIDE
     Indication: Tremor
     Dosage: 1 DOSAGE FORM, Q6H
     Route: 048
     Dates: start: 20230807
  4. OXAZEPAM [Suspect]
     Active Substance: OXAZEPAM
     Indication: Anxiety
     Dosage: 0.5 DOSAGE FORM, Q8H, (SCORED TABLET)
     Route: 048
     Dates: start: 20230926
  5. TRIMEPRAZINE [Concomitant]
     Active Substance: TRIMEPRAZINE
     Indication: Sleep disorder
     Dosage: 30 DOSAGE FORM, QD, (ORAL SOLUTION IN DROPS)
     Route: 048
     Dates: start: 20211027, end: 20230821
  6. CHLORPROMAZINE [Concomitant]
     Active Substance: CHLORPROMAZINE
     Indication: Psychotic disorder
     Dosage: 2 DOSAGE FORM, Q6H, (3-2-2-3)
     Route: 048
     Dates: start: 20211027
  7. PERICIAZINE [Concomitant]
     Active Substance: PERICIAZINE
     Indication: Psychotic disorder
     Dosage: 3 DOSAGE FORM, Q6H, (3-2-3-3)
     Route: 048
     Dates: start: 20211027

REACTIONS (1)
  - Drug reaction with eosinophilia and systemic symptoms [Recovered/Resolved]

NARRATIVE: CASE EVENT DATE: 20231005
